FAERS Safety Report 18663321 (Version 13)
Quarter: 2025Q2

REPORT INFORMATION
  Report Type: Report from Study
  Country: US (occurrence: US)
  Receive Date: 20201224
  Receipt Date: 20250618
  Transmission Date: 20250716
  Serious: Yes (Hospitalization, Other)
  Sender: TAKEDA
  Company Number: US-ARIAD-2017US007560

PATIENT
  Age: 82 Year
  Sex: Female

DRUGS (14)
  1. PONATINIB [Suspect]
     Active Substance: PONATINIB
     Indication: Chronic myeloid leukaemia
     Dosage: 30 MILLIGRAM, QD
     Dates: start: 20161230
  2. PONATINIB [Suspect]
     Active Substance: PONATINIB
     Indication: Acute lymphocytic leukaemia
     Dosage: 15 MILLIGRAM, QD
  3. PONATINIB [Suspect]
     Active Substance: PONATINIB
     Dosage: 15 MILLIGRAM, QOD
     Dates: start: 20190103
  4. PONATINIB [Suspect]
     Active Substance: PONATINIB
  5. PONATINIB [Suspect]
     Active Substance: PONATINIB
     Dosage: 15 MILLIGRAM, QD
  6. PONATINIB [Suspect]
     Active Substance: PONATINIB
     Dosage: 15 MILLIGRAM, QD
  7. PONATINIB [Suspect]
     Active Substance: PONATINIB
     Dosage: 15 MILLIGRAM, QD
  8. PONATINIB [Suspect]
     Active Substance: PONATINIB
  9. PONATINIB [Suspect]
     Active Substance: PONATINIB
  10. PONATINIB [Suspect]
     Active Substance: PONATINIB
  11. METOPROLOL SUCCINATE [Concomitant]
     Active Substance: METOPROLOL SUCCINATE
  12. VITAMIN D [Concomitant]
     Active Substance: VITAMIN D NOS
  13. VITAMIN B COMPLEX [Concomitant]
     Active Substance: CYANOCOBALAMIN\DEXPANTHENOL\NIACINAMIDE\PYRIDOXINE HYDROCHLORIDE\RIBOFLAVIN 5^-PHOSPHATE SODIUM\THIA
  14. BRILINTA [Concomitant]
     Active Substance: TICAGRELOR

REACTIONS (27)
  - Clavicle fracture [Unknown]
  - Hip fracture [Unknown]
  - Fall [Unknown]
  - Urinary tract infection [Unknown]
  - Chronic myeloid leukaemia [Not Recovered/Not Resolved]
  - Neuropathy peripheral [Unknown]
  - Thrombosis [Unknown]
  - Ear disorder [Not Recovered/Not Resolved]
  - Cerebral disorder [Unknown]
  - Memory impairment [Unknown]
  - Liver function test increased [Unknown]
  - Red cell distribution width increased [Not Recovered/Not Resolved]
  - Frustration tolerance decreased [Unknown]
  - Product physical issue [Unknown]
  - Product supply issue [Unknown]
  - Product dose omission issue [Unknown]
  - Product container issue [Unknown]
  - Product distribution issue [Unknown]
  - Off label use [Unknown]
  - Anxiety [Not Recovered/Not Resolved]
  - Confusional state [Unknown]
  - White blood cell count decreased [Not Recovered/Not Resolved]
  - Insomnia [Unknown]
  - Malaise [Not Recovered/Not Resolved]
  - Platelet count decreased [Not Recovered/Not Resolved]
  - Fatigue [Unknown]
  - Hypertension [Unknown]

NARRATIVE: CASE EVENT DATE: 20190103
